FAERS Safety Report 25477142 (Version 2)
Quarter: 2025Q3

REPORT INFORMATION
  Report Type: Spontaneous
  Country: US (occurrence: US)
  Receive Date: 20250625
  Receipt Date: 20250820
  Transmission Date: 20251021
  Serious: No
  Sender: LEO PHARM
  Company Number: US-LEO Pharma-380880

PATIENT
  Age: 91 Year
  Sex: Male

DRUGS (1)
  1. ADBRY [Suspect]
     Active Substance: TRALOKINUMAB-LDRM
     Indication: Dermatitis atopic
     Dosage: TREATMENT DISCONTINUED ON AN UNKNOWN DATE
     Route: 058
     Dates: start: 20241120

REACTIONS (2)
  - Therapeutic product effect incomplete [Unknown]
  - Hypersensitivity [Unknown]
